FAERS Safety Report 13430992 (Version 1)
Quarter: 2017Q2

REPORT INFORMATION
  Report Type: Spontaneous
  Country: SE (occurrence: SE)
  Receive Date: 20170412
  Receipt Date: 20170412
  Transmission Date: 20170830
  Serious: Yes (Hospitalization)
  Sender: FDA-Public Use
  Company Number: SE-PFIZER INC-2017153022

PATIENT
  Age: 36 Year
  Sex: Male

DRUGS (7)
  1. EMOVAT [Concomitant]
  2. ABILIFY [Suspect]
     Active Substance: ARIPIPRAZOLE
     Dosage: 10 MG, SINGLE
     Route: 048
     Dates: start: 20150210, end: 20150210
  3. XANOR [Suspect]
     Active Substance: ALPRAZOLAM
     Dosage: 4 G, SINGLE
     Route: 048
     Dates: start: 20150210, end: 20150210
  4. ELOCON [Concomitant]
     Active Substance: MOMETASONE FUROATE
  5. LOCOID [Concomitant]
     Active Substance: HYDROCORTISONE BUTYRATE
  6. METHADONE [Suspect]
     Active Substance: METHADONE HYDROCHLORIDE
     Dosage: 1250 MG, SINGLE
     Route: 048
     Dates: start: 20150210, end: 20150210
  7. QUETIAPIN ACTAVIS [Concomitant]
     Active Substance: QUETIAPINE

REACTIONS (5)
  - Miosis [Recovered/Resolved]
  - Suicide attempt [Recovered/Resolved]
  - Respiratory distress [Recovered/Resolved]
  - Toxicity to various agents [Recovered/Resolved]
  - Depressed level of consciousness [Recovered/Resolved]

NARRATIVE: CASE EVENT DATE: 20150210
